FAERS Safety Report 5688976-6 (Version None)
Quarter: 2008Q1

REPORT INFORMATION
  Report Type: 
  Country: None (occurrence: None)
  Receive Date: 20080331
  Receipt Date: 20061205
  Transmission Date: 20080703
  Serious: Yes (Death)
  Sender: FDA-Public Use
  Company Number: GB-ROCHE-473848

PATIENT
  Age: 50 Year
  Sex: Male

DRUGS (5)
  1. RIBAVIRIN [Suspect]
     Indication: PNEUMONITIS
     Route: 042
     Dates: start: 20060112, end: 20060117
  2. AMPHOTERICIN B [Concomitant]
  3. CASPOFUNGIN [Concomitant]
  4. SEPTRIN [Concomitant]
  5. TEICOPLANIN [Concomitant]

REACTIONS (1)
  - DEATH [None]
